FAERS Safety Report 20216047 (Version 9)
Quarter: 2022Q1

REPORT INFORMATION
  Report Type: Report from Study
  Country: JP (occurrence: JP)
  Receive Date: 20211222
  Receipt Date: 20220308
  Transmission Date: 20220424
  Serious: Yes (Hospitalization, Other)
  Sender: FDA-Public Use
  Company Number: JP-BRISTOL-MYERS SQUIBB COMPANY-BMS-2021-138431

PATIENT
  Age: 65 Year
  Sex: Male
  Weight: 67 kg

DRUGS (4)
  1. IPILIMUMAB [Suspect]
     Active Substance: IPILIMUMAB
     Indication: Metastatic renal cell carcinoma
     Dosage: 66.2 MILLIGRAM, ONE TIME DOSE
     Route: 041
     Dates: start: 20210210, end: 20210210
  2. IPILIMUMAB [Suspect]
     Active Substance: IPILIMUMAB
     Dosage: 67 MILLIGRAM, ONE TIME DOSE
     Route: 041
     Dates: start: 20210303, end: 20210303
  3. NIVOLUMAB [Suspect]
     Active Substance: NIVOLUMAB
     Indication: Metastatic renal cell carcinoma
     Dosage: 240 MILLIGRAM, ONE TIME DOSE
     Route: 041
     Dates: start: 20210210, end: 20210210
  4. NIVOLUMAB [Suspect]
     Active Substance: NIVOLUMAB
     Dosage: 240 MILLIGRAM, ONE TIME DOSE
     Route: 041
     Dates: start: 20210303, end: 20210303

REACTIONS (3)
  - Hepatic function abnormal [Recovering/Resolving]
  - Immune-mediated dermatitis [Recovering/Resolving]
  - Folliculitis [Recovering/Resolving]

NARRATIVE: CASE EVENT DATE: 20210224
